FAERS Safety Report 18845041 (Version 1)
Quarter: 2021Q1

REPORT INFORMATION
  Report Type: Spontaneous
  Country: US (occurrence: US)
  Receive Date: 20210204
  Receipt Date: 20210204
  Transmission Date: 20210419
  Serious: Yes (Other)
  Sender: FDA-Public Use
  Company Number: None

PATIENT
  Age: 18 Year
  Sex: Male
  Weight: 53.1 kg

DRUGS (5)
  1. ARIPIPRAZOLE 2 MG [Suspect]
     Active Substance: ARIPIPRAZOLE
     Indication: AFFECTIVE DISORDER
     Dosage: ?          QUANTITY:30 TABLET(S);?
     Route: 048
     Dates: start: 20210127, end: 20210203
  2. LEXAPRO [Concomitant]
     Active Substance: ESCITALOPRAM OXALATE
  3. CONCERTA [Concomitant]
     Active Substance: METHYLPHENIDATE HYDROCHLORIDE
  4. MINOCYCLINE [Concomitant]
     Active Substance: MINOCYCLINE HYDROCHLORIDE
  5. XYZAL [Concomitant]
     Active Substance: LEVOCETIRIZINE DIHYDROCHLORIDE

REACTIONS (11)
  - Bruxism [None]
  - Dyskinesia [None]
  - Swollen tongue [None]
  - Muscle spasms [None]
  - Speech disorder [None]
  - Inappropriate affect [None]
  - Headache [None]
  - Jaw disorder [None]
  - Tremor [None]
  - Dystonia [None]
  - Bite [None]

NARRATIVE: CASE EVENT DATE: 20210203
